FAERS Safety Report 4740453-2 (Version None)
Quarter: 2005Q3

REPORT INFORMATION
  Report Type: 
  Country: None (occurrence: None)
  Receive Date: 20050729
  Receipt Date: 20050418
  Transmission Date: 20060218
  Serious: Yes (Other)
  Sender: FDA-Public Use
  Company Number: COT_0056_2005

PATIENT
  Age: 39 Year
  Sex: Male
  Weight: 122.4712 kg

DRUGS (2)
  1. VENTAVIS [Suspect]
     Dosage: 5 MCG IH
     Dates: start: 20050416, end: 20050417
  2. REMODULIN [Concomitant]

REACTIONS (3)
  - HAEMOPTYSIS [None]
  - MALAISE [None]
  - SYNCOPE [None]
